FAERS Safety Report 21363736 (Version 1)
Quarter: 2022Q3

REPORT INFORMATION
  Report Type: Spontaneous
  Country: JP (occurrence: JP)
  Receive Date: 20220922
  Receipt Date: 20220922
  Transmission Date: 20221027
  Serious: Yes (Death)
  Sender: FDA-Public Use
  Company Number: US-AMNEAL PHARMACEUTICALS-2022-AMRX-02542

PATIENT
  Age: 92 Year
  Sex: Female

DRUGS (10)
  1. METOCLOPRAMIDE HYDROCHLORIDE [Suspect]
     Active Substance: METOCLOPRAMIDE HYDROCHLORIDE
     Indication: Nausea
     Dosage: THREE DRIP INFUSIONS
  2. ENALAPRIL [Concomitant]
     Active Substance: ENALAPRIL
  3. SPIRONOLACTONE [Concomitant]
     Active Substance: SPIRONOLACTONE
  4. AZOSEMIDE [Concomitant]
     Active Substance: AZOSEMIDE
  5. CARVEDILOL [Concomitant]
     Active Substance: CARVEDILOL
  6. APIXABAN [Concomitant]
     Active Substance: APIXABAN
  7. RABEPRAZOLE [Concomitant]
     Active Substance: RABEPRAZOLE
  8. ROSUVASTATIN [Concomitant]
     Active Substance: ROSUVASTATIN
  9. NICORANDIL [Concomitant]
     Active Substance: NICORANDIL
  10. ZOLPIDEM [Concomitant]
     Active Substance: ZOLPIDEM TARTRATE

REACTIONS (6)
  - Ventricular fibrillation [Fatal]
  - Torsade de pointes [Fatal]
  - Electrocardiogram QT prolonged [Unknown]
  - Escherichia infection [Unknown]
  - Liver abscess [Unknown]
  - Portal vein thrombosis [Unknown]
